FAERS Safety Report 12331708 (Version 1)
Quarter: 2016Q2

REPORT INFORMATION
  Report Type: Spontaneous
  Country: US (occurrence: None)
  Receive Date: 20160503
  Receipt Date: 20160503
  Transmission Date: 20160815
  Serious: No
  Sender: FDA-Public Use
  Company Number: None

PATIENT
  Age: 8 Year
  Sex: Female
  Weight: 20.81 kg

DRUGS (1)
  1. OMNITROPE [Suspect]
     Active Substance: SOMATROPIN
     Indication: MOSAICISM
     Dosage: 1.4MG 6 DAYS PER WEEK SUB Q
     Route: 058
     Dates: start: 20141222

REACTIONS (1)
  - Rash [None]

NARRATIVE: CASE EVENT DATE: 20160112
